FAERS Safety Report 9021959 (Version 4)
Quarter: 2013Q4

REPORT INFORMATION
  Report Type: Report from Study
  Country: IT (occurrence: IT)
  Receive Date: 20130118
  Receipt Date: 20131011
  Transmission Date: 20140711
  Serious: Yes (Hospitalization, Other)
  Sender: FDA-Public Use
  Company Number: IT-SANOFI-AVENTIS-2013SA001747

PATIENT
  Age: 72 Year
  Sex: Male

DRUGS (18)
  1. AFLIBERCEPT [Suspect]
     Indication: COLORECTAL CANCER METASTATIC
     Dosage: 4MG/KG OVER 60 MINUTES
     Route: 042
     Dates: start: 20121115, end: 20121115
  2. AFLIBERCEPT [Suspect]
     Indication: COLORECTAL CANCER METASTATIC
     Dosage: 4MG/KG OVER 60 MINUTES
     Route: 042
     Dates: start: 20121220, end: 20121220
  3. 5-FU [Suspect]
     Indication: COLORECTAL CANCER METASTATIC
     Route: 040
     Dates: start: 20121115, end: 20121115
  4. 5-FU [Suspect]
     Indication: COLORECTAL CANCER METASTATIC
     Dosage: OVER 48 HOURS
     Route: 041
     Dates: start: 20121115, end: 20121115
  5. 5-FU [Suspect]
     Indication: COLORECTAL CANCER METASTATIC
     Route: 040
     Dates: start: 20121220, end: 20121220
  6. 5-FU [Suspect]
     Indication: COLORECTAL CANCER METASTATIC
     Dosage: OVER 48 HOURS
     Route: 041
     Dates: start: 20121220, end: 20121220
  7. IRINOTECAN [Suspect]
     Indication: COLORECTAL CANCER METASTATIC
     Dosage: 180MG/M2 EVERY HOUR
     Route: 042
     Dates: start: 20121115, end: 20121115
  8. IRINOTECAN [Suspect]
     Indication: COLORECTAL CANCER METASTATIC
     Dosage: 180MG/M2 EVERY 120 MINUTES
     Route: 042
     Dates: start: 20121220, end: 20121220
  9. LEUCOVORIN [Suspect]
     Indication: COLORECTAL CANCER METASTATIC
     Dosage: 400MG/M2 OVER 120 MINUTES
     Route: 042
     Dates: start: 20121115, end: 20121115
  10. LEUCOVORIN [Suspect]
     Indication: COLORECTAL CANCER METASTATIC
     Dosage: 400MG/M2 OVER 120 MINUTES
     Route: 042
     Dates: start: 20121220, end: 20121220
  11. ACE INHIBITOR NOS [Concomitant]
  12. DIURETICS [Concomitant]
  13. LANSOPRAZOLE [Concomitant]
  14. INSULIN [Concomitant]
  15. DIGOXIN [Concomitant]
  16. TAPAZOLE [Concomitant]
  17. DORZOLAMIDE [Concomitant]
     Indication: PROPHYLAXIS
     Dates: start: 201007
  18. HEPARIN GROUP [Concomitant]
     Indication: PROPHYLAXIS
     Dates: start: 201301

REACTIONS (2)
  - Ileus paralytic [Recovered/Resolved with Sequelae]
  - Atrial flutter [Recovered/Resolved]
